FAERS Safety Report 6038241-2 (Version None)
Quarter: 2009Q1

REPORT INFORMATION
  Report Type: 
  Country: None (occurrence: None)
  Receive Date: 20090113
  Receipt Date: 20090113
  Transmission Date: 20090719
  Serious: Yes (Hospitalization)
  Sender: FDA-Public Use
  Company Number: None

PATIENT
  Sex: Male
  Weight: 84.9 kg

DRUGS (2)
  1. FLUDARABINE [Suspect]
     Indication: MYELODYSPLASTIC SYNDROME
     Dosage: 73 MG DAILY X5 IV
     Route: 042
     Dates: start: 20080101, end: 20081005
  2. CYCLOPHOSPHAMIDE [Suspect]
     Indication: MYELODYSPLASTIC SYNDROME
     Dosage: 2100 MG DAILY X2 IV
     Route: 042
     Dates: start: 20081006, end: 20081007

REACTIONS (7)
  - BRONCHOALVEOLAR LAVAGE ABNORMAL [None]
  - DYSPNOEA [None]
  - LUNG INFILTRATION [None]
  - NAUSEA [None]
  - PSEUDOMONAS INFECTION [None]
  - TACHYCARDIA [None]
  - VOMITING [None]
